FAERS Safety Report 5335800-7 (Version None)
Quarter: 2007Q2

REPORT INFORMATION
  Report Type: 
  Country: None (occurrence: None)
  Receive Date: 20070322
  Receipt Date: 20061115
  Transmission Date: 20071010
  Serious: No
  Sender: FDA-Public Use
  Company Number: US-CVT-062357

PATIENT
  Age: 85 Year
  Sex: Male

DRUGS (9)
  1. RANEXA [Suspect]
     Indication: ANGINA PECTORIS
     Dosage: 500 MG, BID; ORAL
     Route: 048
     Dates: start: 20061026, end: 20061028
  2. ASPIRIN [Concomitant]
  3. TOPROL-XL [Concomitant]
  4. TAMBOCOR [Concomitant]
  5. NITROGLYCERIN [Concomitant]
  6. TERAZOSIN HCL [Concomitant]
  7. NITROGLYCERIN (GLYCERYL TRINITRATE) TABLET) [Concomitant]
  8. PRILOSEC [Concomitant]
  9. VYTORIN [Concomitant]

REACTIONS (1)
  - DRUG INEFFECTIVE [None]
